FAERS Safety Report 23327634 (Version 1)
Quarter: 2023Q4

REPORT INFORMATION
  Report Type: Spontaneous
  Country: US (occurrence: None)
  Receive Date: 20231221
  Receipt Date: 20231221
  Transmission Date: 20240109
  Serious: Yes (Disabling)
  Sender: FDA-Public Use
  Company Number: None

PATIENT
  Age: 70 Year
  Sex: Female
  Weight: 65.25 kg

DRUGS (3)
  1. CARDIOLITE [Suspect]
     Active Substance: TECHNETIUM TC-99M SESTAMIBI
     Indication: Cardiac stress test
     Dates: start: 20231219, end: 20231219
  2. CALCIUM [Concomitant]
     Active Substance: CALCIUM
  3. glucosamine/chondroitin [Concomitant]

REACTIONS (12)
  - Headache [None]
  - Dry mouth [None]
  - Nausea [None]
  - Vomiting [None]
  - Blood pressure increased [None]
  - Tremor [None]
  - Anxiety [None]
  - Nonspecific reaction [None]
  - Peripheral swelling [None]
  - Erythema [None]
  - Dizziness [None]
  - Dyspepsia [None]

NARRATIVE: CASE EVENT DATE: 20231219
